FAERS Safety Report 5519376-7 (Version None)
Quarter: 2007Q4

REPORT INFORMATION
  Report Type: 
  Country: None (occurrence: None)
  Receive Date: 20071114
  Receipt Date: 20071030
  Transmission Date: 20080405
  Serious: Yes (Hospitalization)
  Sender: FDA-Public Use
  Company Number: DSA_30653_2007

PATIENT
  Sex: Male

DRUGS (5)
  1. LORAZEPAM [Suspect]
     Dosage: ( 5 MG 1X ORAL)
     Route: 048
     Dates: start: 20070901, end: 20070901
  2. ASPIRIN [Suspect]
     Dosage: (500 MG 1 X ORAL)
     Route: 048
     Dates: start: 20070901, end: 20070901
  3. DOXEPIN HCL [Suspect]
     Dosage: ORAL
     Route: 048
     Dates: start: 20070901, end: 20070901
  4. ETHANOL (ALCOHOL - ETHANOL) [Suspect]
     Dosage: ORAL
     Route: 048
     Dates: start: 20070901, end: 20070901
  5. AMFETAMINE (SPEED - AMFETAMINE) [Suspect]
     Dosage: ( 2 G 1X )
     Dates: start: 20070916, end: 20070916

REACTIONS (5)
  - ABDOMINAL PAIN UPPER [None]
  - DRUG ABUSE [None]
  - MULTIPLE DRUG OVERDOSE [None]
  - STUPOR [None]
  - TONGUE SPASM [None]
